FAERS Safety Report 7950794-3 (Version None)
Quarter: 2011Q4

REPORT INFORMATION
  Report Type: 
  Country: None (occurrence: None)
  Receive Date: 20111201
  Receipt Date: 20111128
  Transmission Date: 20120403
  Serious: No
  Sender: FDA-Public Use
  Company Number: US-PFIZER INC-2011290202

PATIENT
  Sex: Female

DRUGS (1)
  1. CHILDREN'S ADVIL [Suspect]
     Indication: OROPHARYNGEAL PAIN
     Dosage: UNK, 1X/DAY
     Route: 048
     Dates: start: 20111127, end: 20111128

REACTIONS (1)
  - VOMITING [None]
